FAERS Safety Report 9538773 (Version 2)
Quarter: 2013Q3

REPORT INFORMATION
  Report Type: Spontaneous
  Country: US (occurrence: None)
  Receive Date: 20130917
  Receipt Date: 20130919
  Transmission Date: 20140515
  Serious: Yes (Hospitalization, Other)
  Sender: FDA-Public Use
  Company Number: ACO_38361_2013

PATIENT
  Age: 59 Year
  Sex: Female

DRUGS (19)
  1. AMPYRA [Suspect]
     Indication: MULTIPLE SCLEROSIS
     Route: 048
     Dates: start: 201201, end: 201302
  2. PRISTIQ (DESVENIAFAXINE SUCCINATE) [Concomitant]
  3. SINEMET (CARBIDOPA, LEVODOPA) [Concomitant]
  4. GABAPENTIN (GABAPENTIN) [Concomitant]
  5. AMBIEN (ZOLPIDEM TARTRATE) [Concomitant]
  6. DIOVAN (VALSARTAN) [Concomitant]
  7. OTHER THERAPEUTIC PRODUCTS (RED YEAST RICE) [Concomitant]
  8. BACLOFEN (BACLOFEN) [Concomitant]
  9. LEVOTHYROXINE SODIUM (LEVOTHYROXINE SODIUM) [Concomitant]
  10. RESTASIS (CICLOSPORIN) [Concomitant]
  11. GILENYA (FINGOLIMOD HYDROCHLORIDE) [Concomitant]
  12. PROTONIX (PANTOPRAZOLE SODIUM SESQUIHYDRATE) [Concomitant]
  13. DICYCLOMINE (DICYCLOVERINE HYDROCHLORIDE) [Concomitant]
  14. METOPROLOL SUCCINATE (METOPROLOL SUCCINATE) [Concomitant]
  15. FUROSEMIDE (FUROSEMIDE) [Concomitant]
  16. HYDROCODONE/APAP (HYDROCODONE BITARTRATE, PARACETAMOL) [Concomitant]
  17. CYCLOBENZAPRINE (CYCLOBENZAPRINE HYDROCHLORIDE) [Concomitant]
  18. REGLAN (METOCLOPRAMIDE HYDROCHLORIDE) [Concomitant]
  19. COG10 (UBIDECARENONE) [Concomitant]

REACTIONS (7)
  - Urosepsis [None]
  - Pneumonia [None]
  - Tremor [None]
  - Fatigue [None]
  - Anxiety [None]
  - Blood cholesterol increased [None]
  - Headache [None]
